FAERS Safety Report 24799739 (Version 1)
Quarter: 2025Q1

REPORT INFORMATION
  Report Type: Spontaneous
  Country: US (occurrence: US)
  Receive Date: 20250102
  Receipt Date: 20250102
  Transmission Date: 20250409
  Serious: Yes (Other)
  Sender: MYLAN
  Company Number: US-MYLANLABS-2024M1117205

PATIENT
  Age: 27 Year
  Sex: Female

DRUGS (1)
  1. FENTANYL [Suspect]
     Active Substance: FENTANYL
     Indication: Product used for unknown indication
     Route: 065

REACTIONS (5)
  - Drug abuse [Unknown]
  - Accident [Unknown]
  - Withdrawal syndrome [Unknown]
  - Maternal exposure during pregnancy [Unknown]
  - Depression [Unknown]

NARRATIVE: CASE EVENT DATE: 20200711
